FAERS Safety Report 13802038 (Version 2)
Quarter: 2017Q3

REPORT INFORMATION
  Report Type: Spontaneous
  Country: KR (occurrence: KR)
  Receive Date: 20170727
  Receipt Date: 20170912
  Transmission Date: 20171127
  Serious: Yes (Hospitalization)
  Sender: FDA-Public Use
  Company Number: KR-009507513-1704KOR011658

PATIENT
  Age: 62 Year
  Sex: Male
  Weight: 53.4 kg

DRUGS (37)
  1. EMEND (FOSAPREPITANT DIMEGLUMINE) [Suspect]
     Active Substance: FOSAPREPITANT DIMEGLUMINE
     Indication: PROPHYLAXIS OF NAUSEA AND VOMITING
     Dosage: 150 MG, ONCE
     Route: 042
     Dates: start: 20160831, end: 20160831
  2. EMEND (FOSAPREPITANT DIMEGLUMINE) [Suspect]
     Active Substance: FOSAPREPITANT DIMEGLUMINE
     Dosage: 150 MG, ONCE
     Route: 042
     Dates: start: 20161026, end: 20161026
  3. CISPLAN [Concomitant]
     Active Substance: CISPLATIN
     Dosage: 126 MG, ONCE
     Route: 042
     Dates: start: 20161124, end: 20161124
  4. DEXAMETHASONE SODIUM PHOSPHATE. [Concomitant]
     Active Substance: DEXAMETHASONE SODIUM PHOSPHATE
     Indication: PREMEDICATION
     Dosage: 12 MG, ONCE
     Route: 042
     Dates: start: 20160831, end: 20160831
  5. DEXAMETHASONE SODIUM PHOSPHATE. [Concomitant]
     Active Substance: DEXAMETHASONE SODIUM PHOSPHATE
     Dosage: 12 MG, QD
     Route: 042
     Dates: start: 20161026, end: 20161026
  6. EMEND (FOSAPREPITANT DIMEGLUMINE) [Suspect]
     Active Substance: FOSAPREPITANT DIMEGLUMINE
     Dosage: 150 MG, ONCE
     Route: 042
     Dates: start: 20170123, end: 20170123
  7. CISPLAN [Concomitant]
     Active Substance: CISPLATIN
     Dosage: 120 MG, ONCE
     Route: 042
     Dates: start: 20161026, end: 20161026
  8. DEXAMETHASONE SODIUM PHOSPHATE. [Concomitant]
     Active Substance: DEXAMETHASONE SODIUM PHOSPHATE
     Dosage: 8 MG, QD
     Route: 042
     Dates: start: 20161125, end: 20161126
  9. DEXAMETHASONE SODIUM PHOSPHATE. [Concomitant]
     Active Substance: DEXAMETHASONE SODIUM PHOSPHATE
     Dosage: 8 MG, QD
     Route: 042
     Dates: start: 20161227, end: 20161228
  10. EMEND (FOSAPREPITANT DIMEGLUMINE) [Suspect]
     Active Substance: FOSAPREPITANT DIMEGLUMINE
     Dosage: 150 MG, ONCE
     Route: 042
     Dates: start: 20160928, end: 20160928
  11. CISPLAN [Concomitant]
     Active Substance: CISPLATIN
     Dosage: 119 MG, ONCE
     Route: 042
     Dates: start: 20160928, end: 20160928
  12. CISPLAN [Concomitant]
     Active Substance: CISPLATIN
     Dosage: 128 MG, ONCE
     Route: 042
     Dates: start: 20161226, end: 20161226
  13. DEXAMETHASONE SODIUM PHOSPHATE. [Concomitant]
     Active Substance: DEXAMETHASONE SODIUM PHOSPHATE
     Dosage: 12 MG, QD
     Route: 042
     Dates: start: 20161226, end: 20161226
  14. DEXAMETHASONE SODIUM PHOSPHATE. [Concomitant]
     Active Substance: DEXAMETHASONE SODIUM PHOSPHATE
     Dosage: 12 MG, ONCE
     Route: 042
     Dates: start: 20170123, end: 20170123
  15. NASERON [Concomitant]
     Dosage: 0.3 MG, ONCE
     Route: 042
     Dates: start: 20161226, end: 20161226
  16. FLUOROURACIL. [Concomitant]
     Active Substance: FLUOROURACIL
     Dosage: 1590 MG, QD
     Route: 042
     Dates: start: 20160928, end: 20161002
  17. NASERON [Concomitant]
     Indication: PREMEDICATION
     Dosage: 0.3 MG, ONCE
     Route: 042
     Dates: start: 20160831, end: 20160831
  18. NASERON [Concomitant]
     Dosage: 0.3 MG, ONCE
     Route: 042
     Dates: start: 20160928, end: 20160928
  19. NASERON [Concomitant]
     Dosage: 0.3 MG, ONCE
     Route: 042
     Dates: start: 20161026, end: 20161026
  20. FLUOROURACIL. [Concomitant]
     Active Substance: FLUOROURACIL
     Dosage: 1600 MG, QD
     Route: 042
     Dates: start: 20161026, end: 20161031
  21. FLUOROURACIL. [Concomitant]
     Active Substance: FLUOROURACIL
     Dosage: 1680 MG, QD
     Route: 042
     Dates: start: 20161124, end: 20161129
  22. FLUOROURACIL. [Concomitant]
     Active Substance: FLUOROURACIL
     Dosage: 1710 MG, QD
     Route: 042
     Dates: start: 20161226, end: 20161230
  23. CISPLAN [Concomitant]
     Active Substance: CISPLATIN
     Dosage: 130 MG, ONCE
     Route: 042
     Dates: start: 20170123, end: 20170123
  24. DEXAMETHASONE SODIUM PHOSPHATE. [Concomitant]
     Active Substance: DEXAMETHASONE SODIUM PHOSPHATE
     Dosage: 8 MG, QD
     Route: 042
     Dates: start: 20160901, end: 20160902
  25. DEXAMETHASONE SODIUM PHOSPHATE. [Concomitant]
     Active Substance: DEXAMETHASONE SODIUM PHOSPHATE
     Dosage: 8 MG, QD
     Route: 042
     Dates: start: 20160929, end: 20160930
  26. NASERON [Concomitant]
     Dosage: 0.3 MG, ONCE
     Route: 042
     Dates: start: 20161124, end: 20161124
  27. DEXAMETHASONE SODIUM PHOSPHATE. [Concomitant]
     Active Substance: DEXAMETHASONE SODIUM PHOSPHATE
     Dosage: 8 MG, QD
     Route: 042
     Dates: start: 20161027, end: 20161028
  28. DEXAMETHASONE SODIUM PHOSPHATE. [Concomitant]
     Active Substance: DEXAMETHASONE SODIUM PHOSPHATE
     Dosage: 12 MG, ONCE
     Route: 042
     Dates: start: 20161124, end: 20161124
  29. NASERON [Concomitant]
     Dosage: 0.3 MG, ONCE
     Route: 042
     Dates: start: 20170123, end: 20170123
  30. FLUOROURACIL. [Concomitant]
     Active Substance: FLUOROURACIL
     Dosage: 1730 MG, QD
     Route: 042
     Dates: start: 20170123, end: 20170127
  31. EMEND (FOSAPREPITANT DIMEGLUMINE) [Suspect]
     Active Substance: FOSAPREPITANT DIMEGLUMINE
     Dosage: 150 MG, ONCE
     Route: 042
     Dates: start: 20161226, end: 20161226
  32. CISPLAN [Concomitant]
     Active Substance: CISPLATIN
     Indication: TONGUE NEOPLASM MALIGNANT STAGE UNSPECIFIED
     Dosage: 120 MG, ONCE
     Route: 042
     Dates: start: 20160831, end: 20160831
  33. DEXAMETHASONE SODIUM PHOSPHATE. [Concomitant]
     Active Substance: DEXAMETHASONE SODIUM PHOSPHATE
     Dosage: 8 MG, QD
     Route: 042
     Dates: start: 20170124, end: 20170125
  34. FLUOROURACIL. [Concomitant]
     Active Substance: FLUOROURACIL
     Indication: TONGUE NEOPLASM MALIGNANT STAGE UNSPECIFIED
     Dosage: 1600 MG, QD
     Route: 042
     Dates: start: 20160831, end: 20160904
  35. CEFTRIAXONE SODIUM. [Concomitant]
     Active Substance: CEFTRIAXONE SODIUM
     Indication: PROPHYLAXIS
     Dosage: 2 G, QD
     Route: 042
     Dates: start: 20160825, end: 20160905
  36. EMEND (FOSAPREPITANT DIMEGLUMINE) [Suspect]
     Active Substance: FOSAPREPITANT DIMEGLUMINE
     Dosage: 150 MG, ONCE
     Route: 042
     Dates: start: 20161124, end: 20161124
  37. DEXAMETHASONE SODIUM PHOSPHATE. [Concomitant]
     Active Substance: DEXAMETHASONE SODIUM PHOSPHATE
     Dosage: 12 MG, ONCE
     Route: 042
     Dates: start: 20160928, end: 20160928

REACTIONS (1)
  - Tongue haemorrhage [Recovered/Resolved]

NARRATIVE: CASE EVENT DATE: 20160831
